FAERS Safety Report 4911920-3 (Version None)
Quarter: 2006Q1

REPORT INFORMATION
  Report Type: 
  Country: None (occurrence: None)
  Receive Date: 20060213
  Receipt Date: 20060213
  Transmission Date: 20060701
  Serious: No
  Sender: FDA-Public Use
  Company Number: None

PATIENT
  Age: 46 Year
  Sex: Female
  Weight: 94.3482 kg

DRUGS (2)
  1. METHADONE [Suspect]
     Dates: start: 20031101
  2. OXYCODONE [Suspect]
     Dosage: 30 MG BID
     Dates: start: 20050301

REACTIONS (2)
  - PHARMACEUTICAL PRODUCT COMPLAINT [None]
  - URINARY RETENTION [None]
